FAERS Safety Report 11124498 (Version 1)
Quarter: 2015Q2

REPORT INFORMATION
  Report Type: Spontaneous
  Country: US (occurrence: None)
  Receive Date: 20150519
  Receipt Date: 20150519
  Transmission Date: 20150821
  Serious: No
  Sender: FDA-Public Use
  Company Number: None

PATIENT
  Age: 29 Year
  Sex: Female
  Weight: 52.16 kg

DRUGS (5)
  1. GENERIC ADDERAL XR [Concomitant]
  2. VITAMIN D [Concomitant]
     Active Substance: CHOLECALCIFEROL
  3. GENERIC AMBIEN CR [Concomitant]
     Active Substance: ZOLPIDEM TARTRATE
  4. ESCITALOPRAM [Suspect]
     Active Substance: ESCITALOPRAM OXALATE
     Indication: DEPRESSION
     Dosage: 1 PILL ONCE DAILY TAKEN BY MOUTH
     Route: 048
     Dates: start: 20150514, end: 20150517
  5. GENERIC LEXAPRO [Concomitant]
     Active Substance: ESCITALOPRAM OXALATE

REACTIONS (10)
  - Product substitution issue [None]
  - Hypersomnia [None]
  - Fatigue [None]
  - Movement disorder [None]
  - Retching [None]
  - Abnormal dreams [None]
  - Nausea [None]
  - Nightmare [None]
  - Product quality issue [None]
  - Feeling cold [None]

NARRATIVE: CASE EVENT DATE: 20150514
